FAERS Safety Report 10913884 (Version 3)
Quarter: 2017Q1

REPORT INFORMATION
  Report Type: Spontaneous
  Country: US (occurrence: US)
  Receive Date: 20150313
  Receipt Date: 20170224
  Transmission Date: 20170428
  Serious: Yes (Other)
  Sender: FDA-Public Use
  Company Number: US-ELI_LILLY_AND_COMPANY-US201503000494

PATIENT
  Age: 46 Year
  Sex: Female

DRUGS (1)
  1. CYMBALTA [Suspect]
     Active Substance: DULOXETINE HYDROCHLORIDE
     Indication: DEPRESSION
     Dosage: UNK, UNKNOWN
     Route: 065
     Dates: start: 201209, end: 201303

REACTIONS (26)
  - Confusional state [Unknown]
  - Suicide attempt [Unknown]
  - Decreased interest [Unknown]
  - Drug withdrawal syndrome [Unknown]
  - Pain [Unknown]
  - Emotional distress [Unknown]
  - Memory impairment [Unknown]
  - Suicidal ideation [Unknown]
  - Mental disorder [Unknown]
  - Condition aggravated [Unknown]
  - Aggression [Unknown]
  - Dizziness [Unknown]
  - Affect lability [Unknown]
  - Vertigo [Unknown]
  - Dysphoria [Unknown]
  - Depressed mood [Unknown]
  - Emotional disorder [Unknown]
  - Anxiety [Unknown]
  - Disturbance in attention [Unknown]
  - Sensory disturbance [Unknown]
  - Agitation [Unknown]
  - Injury [Unknown]
  - Quality of life decreased [Unknown]
  - Mood swings [Unknown]
  - Irritability [Unknown]
  - Paraesthesia [Unknown]

NARRATIVE: CASE EVENT DATE: 201303
